FAERS Safety Report 10758679 (Version 3)
Quarter: 2015Q2

REPORT INFORMATION
  Report Type: Spontaneous
  Country: US (occurrence: US)
  Receive Date: 20150203
  Receipt Date: 20150528
  Transmission Date: 20150821
  Serious: Yes (Death, Hospitalization, Other)
  Sender: FDA-Public Use
  Company Number: US-009507513-1502USA000534

PATIENT
  Sex: Female
  Weight: 88.6 kg

DRUGS (2)
  1. JANUVIA [Suspect]
     Active Substance: SITAGLIPTIN PHOSPHATE
     Indication: TYPE 2 DIABETES MELLITUS
     Dosage: 100 MG, QD
     Route: 048
     Dates: start: 20120804, end: 20130420
  2. JANUMET [Suspect]
     Active Substance: METFORMIN HYDROCHLORIDE\SITAGLIPTIN PHOSPHATE
     Dosage: UNK
     Route: 048
     Dates: start: 20130329

REACTIONS (33)
  - Radiotherapy [Unknown]
  - Blood cholesterol abnormal [Unknown]
  - Hypokalaemia [Unknown]
  - Cerebrovascular accident [Unknown]
  - Metastases to bone [Unknown]
  - Hepatic lesion [Unknown]
  - Osteoarthritis [Unknown]
  - Full blood count abnormal [Unknown]
  - Drug ineffective [Unknown]
  - Metastases to liver [Unknown]
  - Pulmonary mass [Unknown]
  - Hepatic cirrhosis [Unknown]
  - Parkinsonism [Unknown]
  - Bile duct stent insertion [Unknown]
  - Nephrolithiasis [Unknown]
  - Depression [Unknown]
  - Gastrointestinal wall thickening [Unknown]
  - Aortic arteriosclerosis [Unknown]
  - Hysterectomy [Unknown]
  - Somnolence [Unknown]
  - Cholangitis acute [Recovering/Resolving]
  - Hyperlipidaemia [Unknown]
  - Gastrooesophageal reflux disease [Unknown]
  - Hepatic cyst [Unknown]
  - Urinary incontinence [Unknown]
  - Spinal compression fracture [Unknown]
  - Pneumobilia [Unknown]
  - Pancreatic carcinoma metastatic [Fatal]
  - Escherichia sepsis [Recovering/Resolving]
  - Enterocolitis [Recovering/Resolving]
  - Lymphadenopathy [Unknown]
  - Deafness [Unknown]
  - Inappropriate schedule of drug administration [Unknown]

NARRATIVE: CASE EVENT DATE: 2012
